FAERS Safety Report 20016615 (Version 1)
Quarter: 2021Q4

REPORT INFORMATION
  Report Type: Spontaneous
  Country: US (occurrence: None)
  Receive Date: 20211104
  Receipt Date: 20211104
  Transmission Date: 20220303
  Serious: Yes (Life-Threatening, Hospitalization)
  Sender: FDA-Public Use
  Company Number: None

PATIENT
  Age: 74 Year
  Sex: Male
  Weight: 86 kg

DRUGS (7)
  1. ACTEMRA [Suspect]
     Active Substance: TOCILIZUMAB
     Indication: COVID-19
     Dosage: OTHER FREQUENCY : ONCE;?
     Route: 041
     Dates: start: 20211103, end: 20211103
  2. DEXAMETHASONE [Concomitant]
     Active Substance: DEXAMETHASONE
     Dates: start: 20211031
  3. DILTIAZEM [Concomitant]
     Active Substance: DILTIAZEM
  4. GUAIFENESIN [Concomitant]
     Active Substance: GUAIFENESIN
     Dates: start: 20211101
  5. REMDESIVIR [Concomitant]
     Active Substance: REMDESIVIR
     Dates: start: 20211031, end: 20211104
  6. WARFARIN [Concomitant]
     Active Substance: WARFARIN
     Dates: start: 20211031
  7. Eliquis Bridge for Warfarin [Concomitant]
     Dates: end: 20211103

REACTIONS (6)
  - Platelet count decreased [None]
  - Haemoptysis [None]
  - Occult blood positive [None]
  - Gastrointestinal haemorrhage [None]
  - Acute kidney injury [None]
  - Laboratory test abnormal [None]

NARRATIVE: CASE EVENT DATE: 20211104
